FAERS Safety Report 18904869 (Version 1)
Quarter: 2021Q1

REPORT INFORMATION
  Report Type: Spontaneous
  Country: GB (occurrence: GB)
  Receive Date: 20210217
  Receipt Date: 20210217
  Transmission Date: 20210420
  Serious: Yes (Other)
  Sender: FDA-Public Use
  Company Number: GB-TEVA-2021-GB-1877605

PATIENT
  Age: 59 Year
  Sex: Female

DRUGS (14)
  1. ZAPAIN [Concomitant]
     Active Substance: ACETAMINOPHEN\CODEINE PHOSPHATE
  2. METHOTREXATE. [Concomitant]
     Active Substance: METHOTREXATE
     Indication: PSORIASIS
  3. LOSARTAN. [Concomitant]
     Active Substance: LOSARTAN
  4. CITALOPRAM [Concomitant]
     Active Substance: CITALOPRAM HYDROBROMIDE
  5. FOLIC ACID. [Concomitant]
     Active Substance: FOLIC ACID
  6. METFORMIN [Concomitant]
     Active Substance: METFORMIN HYDROCHLORIDE
  7. NIZATIDINE. [Concomitant]
     Active Substance: NIZATIDINE
  8. LERCANIDIPINE [Concomitant]
     Active Substance: LERCANIDIPINE
  9. BETAMETHASONE. [Concomitant]
     Active Substance: BETAMETHASONE
  10. BETNOVATE [Concomitant]
     Active Substance: BETAMETHASONE
  11. GAVISCON [Concomitant]
     Active Substance: ALUMINUM HYDROXIDE\MAGNESIUM CARBONATE
  12. LANSOPRAZOLE. [Suspect]
     Active Substance: LANSOPRAZOLE
     Dosage: 15MG OR 30MG EACH MORNING WHEN REQUIRED
     Route: 048
     Dates: end: 20201028
  13. CETRABEN EMOLLIENT CREAM [Concomitant]
  14. PREGABALIN. [Concomitant]
     Active Substance: PREGABALIN

REACTIONS (2)
  - Photosensitivity reaction [Unknown]
  - Subacute cutaneous lupus erythematosus [Not Recovered/Not Resolved]

NARRATIVE: CASE EVENT DATE: 2020
